FAERS Safety Report 13049055 (Version 2)
Quarter: 2017Q2

REPORT INFORMATION
  Report Type: Report from Study
  Country: FR (occurrence: FR)
  Receive Date: 20161221
  Receipt Date: 20170421
  Transmission Date: 20170830
  Serious: Yes (Life-Threatening, Other)
  Sender: FDA-Public Use
  Company Number: FR-PFIZER INC-2016584251

PATIENT
  Sex: Female

DRUGS (1)
  1. METHOTREXATE SODIUM. [Suspect]
     Active Substance: METHOTREXATE SODIUM
     Indication: PLACENTA ACCRETA
     Dosage: 50 MG/M2, UNK (INTRAUMBILICAL CORD ADMINISTRATION OF METHOTREXATE 50 MG PER M2 OF BODY-SURFACE AREA)

REACTIONS (2)
  - Uterine necrosis [Unknown]
  - Sepsis [Unknown]
